FAERS Safety Report 12812824 (Version 3)
Quarter: 2017Q1

REPORT INFORMATION
  Report Type: Spontaneous
  Country: JP (occurrence: JP)
  Receive Date: 20161005
  Receipt Date: 20170127
  Transmission Date: 20170428
  Serious: Yes (Death, Other)
  Sender: FDA-Public Use
  Company Number: JP-009507513-1610JPN000923

PATIENT
  Age: 8 Year
  Sex: Male
  Weight: 15.5 kg

DRUGS (11)
  1. LASIX [Concomitant]
     Active Substance: FUROSEMIDE
     Dosage: 25 MG, UNK
     Route: 048
     Dates: end: 20160515
  2. DOBUTAMINE [Concomitant]
     Active Substance: DOBUTAMINE\DOBUTAMINE HYDROCHLORIDE
     Route: 051
     Dates: start: 20160515, end: 20160515
  3. MEROPENEM. [Concomitant]
     Active Substance: MEROPENEM
     Dosage: 1500 MG, UNK
     Route: 051
     Dates: end: 20160515
  4. FUNGIZONE [Concomitant]
     Active Substance: AMPHOTERICIN B
     Indication: PROPHYLAXIS
     Dosage: 12 ML, UNK
     Route: 048
     Dates: end: 20160515
  5. DOPAMINE [Concomitant]
     Active Substance: DOPAMINE\DOPAMINE HYDROCHLORIDE
     Route: 051
     Dates: start: 20160515, end: 20160515
  6. VANCOMYCIN [Concomitant]
     Active Substance: VANCOMYCIN
     Dosage: 600 MG, UNK
     Route: 051
     Dates: start: 20160515, end: 20160515
  7. AMIKACIN SULFATE. [Concomitant]
     Active Substance: AMIKACIN SULFATE
     Dosage: 240 MG, UNK
     Route: 051
     Dates: end: 20160515
  8. CANCIDAS [Suspect]
     Active Substance: CASPOFUNGIN ACETATE
     Indication: FEBRILE NEUTROPENIA
     Dosage: 45 MG, QD
     Route: 041
     Dates: start: 20160515, end: 20160515
  9. FUNGUARD (MICAFUNGIN SODIUM) [Concomitant]
     Indication: PROPHYLAXIS
     Dosage: 50 MG, UNK
     Route: 051
     Dates: end: 20160515
  10. ALDACTONE A [Concomitant]
     Active Substance: SPIRONOLACTONE
     Dosage: 16 MG, UNK
     Route: 048
     Dates: end: 20160515
  11. BOSMIN (EPINEPHRINE) [Concomitant]
     Dosage: 6 MG, UNK
     Route: 051
     Dates: start: 20160515, end: 20160515

REACTIONS (1)
  - Septic shock [Fatal]

NARRATIVE: CASE EVENT DATE: 20160515
